FAERS Safety Report 16544117 (Version 1)
Quarter: 2019Q3

REPORT INFORMATION
  Report Type: Spontaneous
  Country: US (occurrence: US)
  Receive Date: 20190709
  Receipt Date: 20190709
  Transmission Date: 20191004
  Serious: No
  Sender: FDA-Public Use
  Company Number: US-DRREDDYS-USA/USA/19/0111808

PATIENT
  Age: 50 Year
  Sex: Female

DRUGS (2)
  1. PRAMIPEXOLE. [Suspect]
     Active Substance: PRAMIPEXOLE
     Indication: PARKINSON^S DISEASE
     Route: 065
  2. TRIHEXYPHENIDYL [Suspect]
     Active Substance: TRIHEXYPHENIDYL
     Indication: PARKINSON^S DISEASE
     Route: 065

REACTIONS (1)
  - Nausea [Unknown]
